FAERS Safety Report 5592497-9 (Version None)
Quarter: 2008Q1

REPORT INFORMATION
  Report Type: 
  Country: None (occurrence: None)
  Receive Date: 20080115
  Receipt Date: 20080103
  Transmission Date: 20080703
  Serious: Yes (Hospitalization, Other)
  Sender: FDA-Public Use
  Company Number: US-PFIZER INC-2007101397

PATIENT
  Sex: Female
  Weight: 72.727 kg

DRUGS (3)
  1. DILANTIN [Suspect]
     Indication: CONVULSION
     Route: 048
  2. HEPARIN [Suspect]
     Dates: start: 20030101, end: 20030101
  3. KLONOPIN [Concomitant]

REACTIONS (8)
  - DRUG HYPERSENSITIVITY [None]
  - LOSS OF CONSCIOUSNESS [None]
  - MALAISE [None]
  - RASH [None]
  - TENSION HEADACHE [None]
  - THYROID DISORDER [None]
  - THYROTOXIC CRISIS [None]
  - WEIGHT DECREASED [None]
